FAERS Safety Report 5684291-5 (Version None)
Quarter: 2008Q1

REPORT INFORMATION
  Report Type: 
  Country: None (occurrence: None)
  Receive Date: 20080327
  Receipt Date: 20080327
  Transmission Date: 20080703
  Serious: Yes (Hospitalization)
  Sender: FDA-Public Use
  Company Number: None

PATIENT
  Sex: Female

DRUGS (8)
  1. OXALIPLATIN [Suspect]
     Indication: PANCREATIC CARCINOMA
     Dosage: 133MG   IV
     Route: 042
     Dates: start: 20070625, end: 20080311
  2. GEMCITABINE [Suspect]
     Indication: PANCREATIC CARCINOMA
     Dosage: 1328MG  IV
     Route: 042
     Dates: start: 20070625, end: 20080311
  3. CETUXIMAB [Suspect]
     Indication: PANCREATIC CARCINOMA
     Dosage: 354MG   IV
     Route: 042
     Dates: start: 20070625, end: 20080311
  4. LOMOTIL [Concomitant]
  5. METFORMIN HCL [Concomitant]
  6. MAGNESIUM [Concomitant]
  7. EX-FORTE [Concomitant]
  8. TOPROL-XL [Concomitant]

REACTIONS (2)
  - DEHYDRATION [None]
  - DIARRHOEA [None]
